FAERS Safety Report 5755569-1 (Version None)
Quarter: 2008Q2

REPORT INFORMATION
  Report Type: 
  Country: None (occurrence: None)
  Receive Date: 20080528
  Receipt Date: 20080416
  Transmission Date: 20081010
  Serious: Yes (Other)
  Sender: FDA-Public Use
  Company Number: MEDI-0005988

PATIENT
  Age: 18 Month
  Sex: Male

DRUGS (13)
  1. SYNAGIS [Suspect]
     Indication: ANTIVIRAL PROPHYLAXIS
     Dosage: 15 MG
     Dates: start: 20061025, end: 20070124
  2. SYNAGIS [Suspect]
     Indication: ANTIVIRAL PROPHYLAXIS
     Dosage: 15 MG
     Dates: start: 20061025
  3. SYNAGIS [Suspect]
     Indication: ANTIVIRAL PROPHYLAXIS
     Dosage: 15 MG
     Dates: start: 20061114
  4. SYNAGIS [Suspect]
     Indication: ANTIVIRAL PROPHYLAXIS
     Dosage: 15 MG
     Dates: start: 20061211
  5. SYNAGIS [Suspect]
     Indication: ANTIVIRAL PROPHYLAXIS
     Dosage: 15 MG
     Dates: start: 20070221
  6. FUROSEMIDE [Concomitant]
  7. AZITHROMYCIN [Concomitant]
  8. LANSOPRAZOLE [Concomitant]
  9. SILDENAFIL CITRATE [Concomitant]
  10. MELATONIN (MELATONIN) [Concomitant]
  11. DOMPERIDONE (DOMPERIDONE) [Concomitant]
  12. SPIRONOLACTONE [Concomitant]
  13. FERNSOL [Concomitant]

REACTIONS (3)
  - PNEUMONIA ASPIRATION [None]
  - RESPIRATORY DISTRESS [None]
  - RESPIRATORY SYNCYTIAL VIRUS INFECTION [None]
